FAERS Safety Report 12803391 (Version 1)
Quarter: 2016Q4

REPORT INFORMATION
  Report Type: Spontaneous
  Country: US (occurrence: US)
  Receive Date: 20161003
  Receipt Date: 20161003
  Transmission Date: 20170207
  Serious: No
  Sender: FDA-Public Use
  Company Number: US-GE HEALTHCARE MEDICAL DIAGNOSTICS-OMPQ-PR-1605S-0835

PATIENT
  Age: 50 Year
  Sex: Female

DRUGS (5)
  1. ZYRTEC [Concomitant]
     Active Substance: CETIRIZINE HYDROCHLORIDE
  2. OMNIPAQUE [Suspect]
     Active Substance: IOHEXOL
     Indication: LIVER DISORDER
     Route: 042
     Dates: start: 20160518, end: 20160518
  3. LEVOTHYROXINE. [Concomitant]
     Active Substance: LEVOTHYROXINE
  4. OMNIPAQUE [Suspect]
     Active Substance: IOHEXOL
     Indication: DIAGNOSTIC PROCEDURE
  5. LORAZEPAM. [Concomitant]
     Active Substance: LORAZEPAM

REACTIONS (6)
  - Dysphonia [Recovering/Resolving]
  - Throat tightness [Recovering/Resolving]
  - Ocular hyperaemia [Recovering/Resolving]
  - Nasal congestion [Recovering/Resolving]
  - Sinus congestion [Recovering/Resolving]
  - Lacrimation increased [Recovering/Resolving]

NARRATIVE: CASE EVENT DATE: 20160518
